FAERS Safety Report 7939095-7 (Version None)
Quarter: 2011Q4

REPORT INFORMATION
  Report Type: 
  Country: None (occurrence: None)
  Receive Date: 20111124
  Receipt Date: 20111110
  Transmission Date: 20120403
  Serious: Yes (Hospitalization)
  Sender: FDA-Public Use
  Company Number: FR-ROCHE-1005555

PATIENT
  Age: 75 Year
  Sex: Female
  Weight: 50 kg

DRUGS (7)
  1. VALSARTAN [Concomitant]
     Indication: HYPERTENSION
  2. CHLORAMBUCIL [Concomitant]
     Route: 048
  3. MABTHERA [Suspect]
     Indication: EXTRANODAL MARGINAL ZONE B-CELL LYMPHOMA (MALT TYPE)
     Route: 039
     Dates: start: 20111005
  4. DESLORATADINE [Concomitant]
     Indication: EYE ALLERGY
  5. OCULAR THERAPY [Concomitant]
     Indication: EYE ALLERGY
  6. ANTIHISTAMINICS [Concomitant]
     Indication: PREMEDICATION
     Dates: start: 20111005, end: 20111005
  7. CORTICOIDS [Concomitant]
     Indication: PREMEDICATION
     Dates: start: 20111005, end: 20111005

REACTIONS (6)
  - EYELID OEDEMA [None]
  - TRISMUS [None]
  - DRUG ERUPTION [None]
  - GENERAL PHYSICAL HEALTH DETERIORATION [None]
  - FACE OEDEMA [None]
  - ARTHRALGIA [None]
